FAERS Safety Report 9912014 (Version 1)
Quarter: 2014Q1

REPORT INFORMATION
  Report Type: Spontaneous
  Country: US (occurrence: US)
  Receive Date: 20140219
  Receipt Date: 20140219
  Transmission Date: 20141002
  Serious: No
  Sender: FDA-Public Use
  Company Number: US-MYLANLABS-PF-2013279637

PATIENT
  Age: 35 Year
  Sex: Male
  Weight: 49.9 kg

DRUGS (1)
  1. EPIPEN JR [Suspect]
     Dosage: 0.15 MG, UNK
     Route: 030
     Dates: start: 20130923

REACTIONS (2)
  - Accidental exposure to product [Recovered/Resolved]
  - Injection site paraesthesia [Recovered/Resolved]
